FAERS Safety Report 5814851-X (Version None)
Quarter: 2008Q3

REPORT INFORMATION
  Report Type: 
  Country: None (occurrence: None)
  Receive Date: 20080718
  Receipt Date: 20080714
  Transmission Date: 20090109
  Serious: Yes (Hospitalization)
  Sender: FDA-Public Use
  Company Number: JP-AMGEN-US295232

PATIENT
  Age: 84 Year
  Sex: Female

DRUGS (6)
  1. ENBREL [Suspect]
     Indication: RHEUMATOID ARTHRITIS
     Dosage: UNSPECIFIED
     Route: 058
     Dates: start: 20080520, end: 20080702
  2. CYANOCOBALAMIN [Concomitant]
     Dosage: UNSPECIFIED
     Route: 048
  3. PROTECADIN [Concomitant]
     Dosage: UNSPECIFIED
     Route: 048
  4. PREDONINE [Concomitant]
     Dosage: UNSPECIFIED
     Route: 048
  5. PRORENAL [Concomitant]
     Dosage: UNSPECIFIED
     Route: 048
  6. CHARCOAL, ACTIVATED [Concomitant]
     Route: 065

REACTIONS (3)
  - ARTHRALGIA [None]
  - CONDITION AGGRAVATED [None]
  - MUSCULAR WEAKNESS [None]
